FAERS Safety Report 15805139 (Version 1)
Quarter: 2019Q1

REPORT INFORMATION
  Report Type: Spontaneous
  Country: IE (occurrence: IE)
  Receive Date: 20190110
  Receipt Date: 20190110
  Transmission Date: 20190417
  Serious: Yes (Other)
  Sender: FDA-Public Use
  Company Number: IE-UCBSA-2019000882

PATIENT
  Age: 3 Year
  Sex: Male
  Weight: 14 kg

DRUGS (3)
  1. KEPPRA [Suspect]
     Active Substance: LEVETIRACETAM
     Indication: SEIZURE
     Dosage: 86MG
     Route: 042
     Dates: start: 20181004, end: 201810
  2. KEPPRA [Suspect]
     Active Substance: LEVETIRACETAM
     Dosage: 171MG
     Route: 042
     Dates: start: 201810, end: 20181011
  3. PHENYTOIN. [Concomitant]
     Active Substance: PHENYTOIN
     Indication: SEIZURE
     Dates: start: 20181006, end: 20181010

REACTIONS (2)
  - Off label use [Unknown]
  - Thrombocytopenia [Recovered/Resolved]

NARRATIVE: CASE EVENT DATE: 20181004
